FAERS Safety Report 7733607-4 (Version None)
Quarter: 2011Q3

REPORT INFORMATION
  Report Type: 
  Country: None (occurrence: None)
  Receive Date: 20110902
  Receipt Date: 20110902
  Transmission Date: 20111222
  Serious: Yes (Disabling)
  Sender: FDA-Public Use
  Company Number: None

PATIENT
  Age: 90 Year
  Sex: Female
  Weight: 79.3795 kg

DRUGS (2)
  1. FOSAMAX [Suspect]
     Indication: BONE LOSS
     Dosage: WKLY PO
     Route: 048
     Dates: start: 20030101, end: 20080101
  2. ALENDRONATE SODIUM [Suspect]
     Dosage: 70MG WKLY PO
     Route: 048
     Dates: start: 20080101, end: 20110101

REACTIONS (5)
  - ABASIA [None]
  - STRESS FRACTURE [None]
  - PAIN IN EXTREMITY [None]
  - FEMUR FRACTURE [None]
  - INCORRECT DRUG ADMINISTRATION DURATION [None]
